FAERS Safety Report 12008771 (Version 1)
Quarter: 2016Q1

REPORT INFORMATION
  Report Type: Spontaneous
  Country: US (occurrence: None)
  Receive Date: 20160203
  Receipt Date: 20160203
  Transmission Date: 20160526
  Serious: Yes (Other)
  Sender: FDA-Public Use
  Company Number: None

PATIENT
  Age: 44 Year
  Sex: Male
  Weight: 79.83 kg

DRUGS (12)
  1. SOLU-MEDROL [Suspect]
     Active Substance: METHYLPREDNISOLONE SODIUM SUCCINATE
     Route: 042
     Dates: start: 20150113, end: 20150115
  2. CITALOPRAM [Concomitant]
     Active Substance: CITALOPRAM HYDROBROMIDE
  3. ALEMTUZUMAB [Suspect]
     Active Substance: ALEMTUZUMAB
     Indication: MULTIPLE SCLEROSIS
     Route: 042
     Dates: start: 20150113, end: 20150115
  4. PHENTERMINE. [Concomitant]
     Active Substance: PHENTERMINE
  5. TRAMADOL. [Concomitant]
     Active Substance: TRAMADOL
  6. FLOMAX [Concomitant]
     Active Substance: TAMSULOSIN HYDROCHLORIDE
  7. TIZANIDINE. [Concomitant]
     Active Substance: TIZANIDINE
  8. BACLOFEN. [Concomitant]
     Active Substance: BACLOFEN
  9. TRIMETHOPRIM-SMZ DS [Concomitant]
  10. LOSARTAN. [Concomitant]
     Active Substance: LOSARTAN
  11. VITAMIN D [Concomitant]
     Active Substance: CHOLECALCIFEROL
  12. TEMAZEPAM. [Concomitant]
     Active Substance: TEMAZEPAM

REACTIONS (6)
  - Fatigue [None]
  - Heart rate increased [None]
  - Malaise [None]
  - Basedow^s disease [None]
  - Myalgia [None]
  - Pyrexia [None]

NARRATIVE: CASE EVENT DATE: 20151209
